FAERS Safety Report 26073626 (Version 1)
Quarter: 2025Q4

REPORT INFORMATION
  Report Type: Spontaneous
  Country: EU (occurrence: EU)
  Receive Date: 20251121
  Receipt Date: 20251121
  Transmission Date: 20260117
  Serious: Yes (Life-Threatening)
  Sender: ACCORD
  Company Number: None

PATIENT
  Age: 80 Year
  Sex: Male

DRUGS (3)
  1. METHOTREXATE [Suspect]
     Active Substance: METHOTREXATE
     Indication: Rheumatoid arthritis
     Dates: start: 202407, end: 20250928
  2. XARELTO [Concomitant]
     Active Substance: RIVAROXABAN
     Dosage: STRENGTH STATED AS 10
     Dates: end: 20250929
  3. FOLATE SODIUM [Concomitant]
     Active Substance: FOLATE SODIUM

REACTIONS (2)
  - B-cell lymphoma [Not Recovered/Not Resolved]
  - Pulmonary embolism [Unknown]

NARRATIVE: CASE EVENT DATE: 20250101
